FAERS Safety Report 8598365-2 (Version None)
Quarter: 2012Q3

REPORT INFORMATION
  Report Type: 
  Country: None (occurrence: None)
  Receive Date: 20120816
  Receipt Date: 20120807
  Transmission Date: 20120928
  Serious: Yes (Other)
  Sender: FDA-Public Use
  Company Number: US-JNJFOC-20120508786

PATIENT
  Sex: Female
  Weight: 78.02 kg

DRUGS (6)
  1. REMICADE [Suspect]
     Indication: PRODUCT USED FOR UNKNOWN INDICATION
     Dosage: TOTAL DOSE 500 MG
     Route: 042
  2. TYLENOL [Concomitant]
     Indication: PREMEDICATION
     Route: 065
  3. REMICADE [Suspect]
     Dosage: TOTAL DOSE: 500 MG
     Route: 042
     Dates: start: 20120504
  4. TOPAMAX [Concomitant]
     Indication: SLEEP DISORDER
     Route: 065
  5. CLARITIN [Concomitant]
     Indication: PREMEDICATION
     Route: 065
  6. LISINOPRIL [Concomitant]
     Indication: BLOOD PRESSURE
     Route: 065

REACTIONS (7)
  - DIZZINESS [None]
  - PARAESTHESIA [None]
  - INFUSION RELATED REACTION [None]
  - HEADACHE [None]
  - FLUSHING [None]
  - PANIC ATTACK [None]
  - ABDOMINAL DISCOMFORT [None]
